FAERS Safety Report 9463669 (Version 2)
Quarter: 2013Q3

REPORT INFORMATION
  Report Type: Report from Study
  Country: US (occurrence: US)
  Receive Date: 20130819
  Receipt Date: 20130911
  Transmission Date: 20140515
  Serious: Yes (Hospitalization)
  Sender: FDA-Public Use
  Company Number: PHEH2013US017362

PATIENT
  Age: 87 Year
  Sex: Male
  Weight: 60 kg

DRUGS (6)
  1. AFINITOR [Suspect]
     Indication: PANCREATIC NEUROENDOCRINE TUMOUR
     Dosage: 10 MG, QD
     Route: 048
     Dates: start: 20130304, end: 20130512
  2. INSULIN [Concomitant]
     Indication: DIABETES MELLITUS
     Dosage: 20 U, UNK
  3. ALBUTEROL [Concomitant]
     Dosage: 1 DF, PRN
  4. ASPIRIN [Concomitant]
     Dosage: 81 MG, UNK
     Route: 048
  5. ALLOPURINOL [Concomitant]
     Indication: GOUT
     Dosage: 300 MG, UNK
     Route: 048
  6. LANTUS [Concomitant]
     Indication: DIABETES MELLITUS
     Dosage: 20 U, UNK
     Route: 058

REACTIONS (7)
  - Renal failure acute [Recovered/Resolved]
  - Azotaemia [Recovered/Resolved]
  - Anaemia [Recovered/Resolved]
  - Dehydration [Recovered/Resolved]
  - Lethargy [Recovered/Resolved]
  - Decreased appetite [Recovered/Resolved]
  - Asthenia [Recovered/Resolved]
